FAERS Safety Report 23954200 (Version 2)
Quarter: 2024Q2

REPORT INFORMATION
  Report Type: Report from Study
  Country: BR (occurrence: BR)
  Receive Date: 20240609
  Receipt Date: 20240612
  Transmission Date: 20240716
  Serious: Yes (Hospitalization, Disabling, Other)
  Sender: FDA-Public Use
  Company Number: BR-NOVOPROD-1231610

PATIENT
  Age: 912 Month
  Sex: Female

DRUGS (2)
  1. XULTOPHY 100/3.6 [Suspect]
     Active Substance: INSULIN DEGLUDEC\LIRAGLUTIDE
     Dosage: 26 IU
  2. XULTOPHY 100/3.6 [Suspect]
     Active Substance: INSULIN DEGLUDEC\LIRAGLUTIDE
     Indication: Type 2 diabetes mellitus
     Dosage: 36 IU

REACTIONS (9)
  - Hypoglycaemia [Unknown]
  - Toe amputation [Unknown]
  - Fall [Unknown]
  - Haemorrhoid operation [Unknown]
  - Pulmonary thrombosis [Unknown]
  - Leg amputation [Unknown]
  - Localised infection [Unknown]
  - Urinary tract infection [Unknown]
  - Intentional product use issue [Unknown]

NARRATIVE: CASE EVENT DATE: 20240531
